FAERS Safety Report 12592040 (Version 1)
Quarter: 2016Q3

REPORT INFORMATION
  Report Type: Spontaneous
  Country: US (occurrence: None)
  Receive Date: 20160725
  Receipt Date: 20160725
  Transmission Date: 20161109
  Serious: No
  Sender: FDA-Public Use
  Company Number: None

PATIENT
  Age: 66 Year
  Sex: Male
  Weight: 90.72 kg

DRUGS (6)
  1. BYTSTOLIC [Concomitant]
  2. VITAMIN E [Concomitant]
     Active Substance: .ALPHA.-TOCOPHEROL
  3. MIRAPEX [Concomitant]
     Active Substance: PRAMIPEXOLE DIHYDROCHLORIDE
  4. SINEMET [Concomitant]
     Active Substance: CARBIDOPA\LEVODOPA
  5. SMARTMOUTH ADVANCE CLINICAL FORMULA MINT [Suspect]
     Active Substance: CETYLPYRIDINIUM CHLORIDE
     Indication: BREATH ODOUR
     Dosage: 1 OUNCE (S)  AS NEEDED TAKEN BY MOUTH
     Route: 048
     Dates: start: 20160705, end: 20160705
  6. VITAMIN B12 [Concomitant]
     Active Substance: CYANOCOBALAMIN

REACTIONS (2)
  - Failure of child resistant mechanism for pharmaceutical product [None]
  - Accidental exposure to product by child [None]

NARRATIVE: CASE EVENT DATE: 20160705
